FAERS Safety Report 5695934-4 (Version None)
Quarter: 2008Q2

REPORT INFORMATION
  Report Type: 
  Country: None (occurrence: None)
  Receive Date: 20080407
  Receipt Date: 20080327
  Transmission Date: 20081010
  Serious: Yes (Death, Other)
  Sender: FDA-Public Use
  Company Number: ES-BRISTOL-MYERS SQUIBB COMPANY-14031389

PATIENT
  Age: 68 Year
  Sex: Male

DRUGS (9)
  1. METFORMIN HCL [Suspect]
     Indication: DIABETES MELLITUS
     Dosage: STRENGTH-850MG, FORM = TABS
     Route: 048
  2. NITROGLYCERIN [Suspect]
  3. DILTIAZEM HCL [Suspect]
  4. ASPIRIN [Suspect]
  5. RAMIPRIL [Suspect]
  6. GLYBURIDE [Suspect]
  7. CLOPIDOGREL BISULFATE [Suspect]
  8. TORSEMIDE [Suspect]
  9. TRIMETAZIDINE [Suspect]

REACTIONS (3)
  - CARDIAC ARREST [None]
  - DRUG TOXICITY [None]
  - METABOLIC ACIDOSIS [None]
